FAERS Safety Report 7472014-9 (Version None)
Quarter: 2011Q2

REPORT INFORMATION
  Report Type: 
  Country: None (occurrence: None)
  Receive Date: 20110511
  Receipt Date: 20100927
  Transmission Date: 20111010
  Serious: No
  Sender: FDA-Public Use
  Company Number: A0884063A

PATIENT
  Age: 54 Year
  Sex: Female

DRUGS (4)
  1. UNSPECIFIED MEDICATION [Concomitant]
  2. LISINOPRIL [Concomitant]
  3. PRILOSEC [Concomitant]
  4. TYKERB [Suspect]
     Indication: BREAST CANCER
     Dosage: 1000MGD PER DAY
     Route: 048
     Dates: start: 20100801

REACTIONS (4)
  - ALOPECIA [None]
  - SCRATCH [None]
  - SKIN IRRITATION [None]
  - PRURITUS [None]
